FAERS Safety Report 4329842-8 (Version None)
Quarter: 2004Q1

REPORT INFORMATION
  Report Type: 
  Country: None (occurrence: None)
  Receive Date: 20040329
  Receipt Date: 20040222
  Transmission Date: 20041129
  Serious: Yes (Hospitalization, Other)
  Sender: FDA-Public Use
  Company Number: 230010M03AUS

PATIENT
  Sex: Female
  Weight: 60 kg

DRUGS (2)
  1. REBIF (INTERFERON BETA) [Suspect]
  2. CITALOPRAM HYDROBROMIDE [Concomitant]

REACTIONS (3)
  - HEPATIC FUNCTION ABNORMAL [None]
  - LETHARGY [None]
  - LIVER FUNCTION TEST ABNORMAL [None]
